FAERS Safety Report 7308708-5 (Version None)
Quarter: 2011Q1

REPORT INFORMATION
  Report Type: 
  Country: None (occurrence: None)
  Receive Date: 20110211
  Receipt Date: 20100204
  Transmission Date: 20110831
  Serious: Yes (Other)
  Sender: FDA-Public Use
  Company Number: A0842942A

PATIENT
  Age: 78 Year
  Sex: Male

DRUGS (3)
  1. ASPIRIN [Suspect]
     Indication: COAGULOPATHY
     Dosage: /ORAL
     Route: 048
  2. CLOPIDROGREL BISULFATE [Suspect]
     Indication: PROPHYLAXIS
     Dosage: / ORAL
     Route: 048
  3. ASPIRIN [Suspect]
     Indication: COAGULOPATHY
     Dosage: /ORAL
     Route: 048

REACTIONS (2)
  - ASTHMA [None]
  - CONDITION AGGRAVATED [None]
